FAERS Safety Report 10281200 (Version 1)
Quarter: 2014Q3

REPORT INFORMATION
  Report Type: Spontaneous
  Country: US (occurrence: None)
  Receive Date: 20140702
  Receipt Date: 20140702
  Transmission Date: 20150326
  Serious: Yes (Other)
  Sender: FDA-Public Use
  Company Number: None

PATIENT
  Age: 76 Year
  Sex: Female
  Weight: 90.72 kg

DRUGS (4)
  1. VITAMIN D [Concomitant]
     Active Substance: CHOLECALCIFEROL
  2. ZIRCIN WINTER [Concomitant]
  3. TAPAZOLE [Suspect]
     Active Substance: METHIMAZOLE
     Indication: THYROID DISORDER
     Route: 048
  4. FISH OIL [Concomitant]
     Active Substance: FISH OIL

REACTIONS (3)
  - Alopecia [None]
  - Trichorrhexis [None]
  - Hair texture abnormal [None]

NARRATIVE: CASE EVENT DATE: 201109
